FAERS Safety Report 6922226-5 (Version None)
Quarter: 2010Q3

REPORT INFORMATION
  Report Type: 
  Country: None (occurrence: None)
  Receive Date: 20100813
  Receipt Date: 20100810
  Transmission Date: 20110219
  Serious: Yes (Other)
  Sender: FDA-Public Use
  Company Number: US-ASTRAZENECA-2008UW08907

PATIENT
  Age: 16533 Day
  Sex: Male
  Weight: 137.9 kg

DRUGS (10)
  1. SEROQUEL [Suspect]
     Indication: DEPRESSION
     Dosage: 100 MG TO 800 MG
     Route: 048
     Dates: start: 20021001, end: 20070601
  2. SEROQUEL [Suspect]
     Indication: SCHIZOPHRENIA
     Dosage: 100 MG TO 800 MG
     Route: 048
     Dates: start: 20021001, end: 20070601
  3. SEROQUEL [Suspect]
     Dosage: 300 MG TO 600 MG
     Route: 048
     Dates: start: 20051201, end: 20060628
  4. SEROQUEL [Suspect]
     Dosage: 300 MG TO 600 MG
     Route: 048
     Dates: start: 20051201, end: 20060628
  5. RISPERDAL [Concomitant]
     Indication: SCHIZOPHRENIA
     Dates: start: 20021031
  6. ZYPREXA [Concomitant]
     Indication: SCHIZOPHRENIA
     Dosage: 10-20 MG
     Dates: start: 20011101, end: 20070901
  7. ABILIFY [Concomitant]
     Dates: start: 20080101
  8. GEODON [Concomitant]
     Dates: start: 20100101
  9. TRILAFON [Concomitant]
  10. TRIAVIL [Concomitant]

REACTIONS (6)
  - ATRIAL FIBRILLATION [None]
  - BLOOD TRIGLYCERIDES INCREASED [None]
  - CHOLELITHIASIS [None]
  - DIABETIC COMPLICATION [None]
  - HEART RATE IRREGULAR [None]
  - TYPE 2 DIABETES MELLITUS [None]
